FAERS Safety Report 20864642 (Version 2)
Quarter: 2022Q3

REPORT INFORMATION
  Report Type: Spontaneous
  Country: GB (occurrence: GB)
  Receive Date: 20220524
  Receipt Date: 20220706
  Transmission Date: 20221027
  Serious: Yes (Other)
  Sender: FDA-Public Use
  Company Number: GB-NOVARTISPH-NVSC2022GB114707

PATIENT
  Age: 71 Year
  Sex: Male

DRUGS (2)
  1. BEOVU [Suspect]
     Active Substance: BROLUCIZUMAB-DBLL
     Indication: Neovascular age-related macular degeneration
     Dosage: UNK (FIRST INJECTION)
     Route: 031
     Dates: start: 20220330
  2. BEOVU [Suspect]
     Active Substance: BROLUCIZUMAB-DBLL
     Dosage: UNK (SECOND INJECTION)
     Route: 031
     Dates: start: 20220427, end: 20220427

REACTIONS (11)
  - Iridocyclitis [Recovered/Resolved]
  - Vitreous floaters [Unknown]
  - Ocular hyperaemia [Unknown]
  - Photopsia [Unknown]
  - Eye pain [Unknown]
  - Intra-ocular injection complication [Unknown]
  - Dry age-related macular degeneration [Unknown]
  - Photophobia [Unknown]
  - Vitreal cells [Unknown]
  - Anterior chamber cell [Recovered/Resolved]
  - Visual acuity reduced [Unknown]

NARRATIVE: CASE EVENT DATE: 20220504
